FAERS Safety Report 4973291-6 (Version None)
Quarter: 2006Q2

REPORT INFORMATION
  Report Type: 
  Country: None (occurrence: None)
  Receive Date: 20060414
  Receipt Date: 20050706
  Transmission Date: 20061013
  Serious: Yes (Death, Other)
  Sender: FDA-Public Use
  Company Number: US-MERCK-0507USA00961

PATIENT
  Age: 69 Year
  Sex: Male

DRUGS (6)
  1. VIOXX [Suspect]
     Indication: ARTHRITIS
     Route: 048
     Dates: start: 20021201, end: 20030101
  2. VIOXX [Suspect]
     Indication: GOUT
     Route: 048
     Dates: start: 20021201, end: 20030101
  3. BEXTRA [Suspect]
     Route: 065
  4. CELEBREX [Suspect]
     Route: 065
  5. COUMADIN [Concomitant]
     Route: 065
  6. ALLOPURINOL MSD [Concomitant]
     Route: 065

REACTIONS (6)
  - CARDIAC ARREST [None]
  - CARDIAC VALVE DISEASE [None]
  - DEATH [None]
  - MITRAL VALVE REPAIR [None]
  - PRESCRIBED OVERDOSE [None]
  - RENAL FAILURE [None]
